FAERS Safety Report 18704309 (Version 2)
Quarter: 2021Q1

REPORT INFORMATION
  Report Type: Spontaneous
  Country: US (occurrence: US)
  Receive Date: 20210105
  Receipt Date: 20210222
  Transmission Date: 20210419
  Serious: Yes (Death, Other)
  Sender: FDA-Public Use
  Company Number: US-MALLINCKRODT-T202006133

PATIENT
  Age: 49 Year
  Sex: Female

DRUGS (3)
  1. H.P. ACTHAR [Suspect]
     Active Substance: CORTICOTROPIN
     Indication: OEDEMA
     Dosage: 40 UNITS TWICE WEEKLY
     Route: 065
  2. H.P. ACTHAR [Suspect]
     Active Substance: CORTICOTROPIN
     Indication: WEIGHT INCREASED
  3. H.P. ACTHAR [Suspect]
     Active Substance: CORTICOTROPIN
     Indication: PROTEINURIA
     Dosage: 80 UNITS THRICE WEEKLY
     Route: 065

REACTIONS (4)
  - Bile duct cancer [Unknown]
  - Pancreatitis acute [Unknown]
  - Pancreatic carcinoma [Unknown]
  - Death [Fatal]
